FAERS Safety Report 24036826 (Version 1)
Quarter: 2024Q3

REPORT INFORMATION
  Report Type: Spontaneous
  Country: FR (occurrence: FR)
  Receive Date: 20240701
  Receipt Date: 20240701
  Transmission Date: 20241017
  Serious: Yes (Other)
  Sender: PFIZER
  Company Number: None

PATIENT
  Age: 37 Year
  Sex: Male
  Weight: 92 kg

DRUGS (6)
  1. DOXORUBICIN HYDROCHLORIDE [Suspect]
     Active Substance: DOXORUBICIN HYDROCHLORIDE
     Indication: Hodgkin^s disease stage II
     Dosage: D1 OF EACH CYCLE
     Route: 042
     Dates: start: 20240409, end: 20240409
  2. VINCRISTINE SULFATE [Suspect]
     Active Substance: VINCRISTINE SULFATE
     Indication: Hodgkin^s disease stage II
     Dosage: D8 OF EACH CYCLE
     Route: 042
     Dates: start: 20240416, end: 20240416
  3. BLEOMYCIN [Suspect]
     Active Substance: BLEOMYCIN SULFATE
     Indication: Hodgkin^s disease stage II
     Dosage: D8 OF EACH CYCLE
     Route: 042
     Dates: start: 20240416, end: 20240416
  4. ETOPOSIDE [Suspect]
     Active Substance: ETOPOSIDE
     Indication: Hodgkin^s disease stage II
     Dosage: 420 MG ON D1, D2 AND D3 OF EACH CYCLE
     Route: 042
     Dates: start: 20240409, end: 20240411
  5. CYCLOPHOSPHAMIDE [Suspect]
     Active Substance: CYCLOPHOSPHAMIDE
     Indication: Hodgkin^s disease stage II
     Dosage: D1 OF EACH CYCLE
     Route: 042
     Dates: start: 20240409, end: 20240409
  6. PROCARBAZINE [Suspect]
     Active Substance: PROCARBAZINE
     Indication: Hodgkin^s disease stage II
     Dosage: D1 TO D7 OF EACH CYCLE
     Route: 048
     Dates: start: 20240409, end: 20240415

REACTIONS (1)
  - Flagellate dermatitis [Recovering/Resolving]

NARRATIVE: CASE EVENT DATE: 20240417
